FAERS Safety Report 6726741-9 (Version None)
Quarter: 2010Q2

REPORT INFORMATION
  Report Type: 
  Country: None (occurrence: None)
  Receive Date: 20100515
  Receipt Date: 20100506
  Transmission Date: 20101027
  Serious: Yes (Other)
  Sender: FDA-Public Use
  Company Number: JP-JNJFOC-20100502412

PATIENT
  Age: 79 Year
  Sex: Male

DRUGS (25)
  1. DUROTEP MT [Suspect]
     Indication: CANCER PAIN
     Route: 062
  2. DUROTEP MT [Suspect]
     Route: 062
  3. DUROTEP MT [Suspect]
     Route: 062
  4. DUROTEP MT [Suspect]
     Route: 062
  5. DUROTEP MT [Suspect]
     Route: 062
  6. OXYCONTIN [Concomitant]
     Indication: CANCER PAIN
     Route: 048
  7. OXINORM (OXYCODONE HYDROCHLORIDE) [Concomitant]
     Indication: CANCER PAIN
     Route: 048
  8. OXINORM (OXYCODONE HYDROCHLORIDE) [Concomitant]
     Route: 048
  9. OXINORM (OXYCODONE HYDROCHLORIDE) [Concomitant]
     Route: 048
  10. OXINORM (OXYCODONE HYDROCHLORIDE) [Concomitant]
     Route: 048
  11. OXINORM (OXYCODONE HYDROCHLORIDE) [Concomitant]
     Route: 048
  12. OXINORM (OXYCODONE HYDROCHLORIDE) [Concomitant]
     Route: 048
  13. OXINORM (OXYCODONE HYDROCHLORIDE) [Concomitant]
     Route: 048
  14. SOLETON [Concomitant]
     Indication: ANALGESIC THERAPY
     Route: 048
  15. CYTOTEC [Concomitant]
     Indication: PROPHYLAXIS
     Route: 048
  16. MAGMITT [Concomitant]
     Indication: PROPHYLAXIS
     Route: 048
  17. CARTEOLOL HYDROCHLORIDE [Concomitant]
     Indication: GLAUCOMA
     Dosage: EYE DROPS
     Route: 031
  18. KARY UNI [Concomitant]
     Indication: CATARACT
     Dosage: EYE DROPS
     Route: 031
  19. RIZABEN [Concomitant]
     Indication: CONJUNCTIVITIS ALLERGIC
     Dosage: EYE DROPS
     Route: 031
  20. TAMSULOSIN HCL [Concomitant]
     Indication: BENIGN PROSTATIC HYPERPLASIA
     Route: 048
  21. HYPEN [Concomitant]
     Indication: ANALGESIC THERAPY
     Route: 048
  22. TAKEPRON [Concomitant]
     Indication: PROPHYLAXIS
     Route: 048
  23. HIRUDOID CREAM [Concomitant]
     Indication: PRURITUS
     Dosage: P.R.N (AS NEEDED)
     Route: 062
  24. RINDERON-VG [Concomitant]
     Indication: PRURITUS
     Dosage: P.R.N (AS NEEDED)
     Route: 062
  25. NAPROXEN [Concomitant]
     Indication: ANALGESIC THERAPY
     Route: 048

REACTIONS (4)
  - APPLICATION SITE PRURITUS [None]
  - ASCITES [None]
  - DELIRIUM [None]
  - PRURITUS [None]
